FAERS Safety Report 11148014 (Version 2)
Quarter: 2015Q2

REPORT INFORMATION
  Report Type: Spontaneous
  Country: JP (occurrence: JP)
  Receive Date: 20150529
  Receipt Date: 20150609
  Transmission Date: 20150821
  Serious: Yes (Hospitalization)
  Sender: FDA-Public Use
  Company Number: JP-ROCHE-1579146

PATIENT
  Age: 81 Year
  Sex: Female
  Weight: 34 kg

DRUGS (9)
  1. EDIROL [Concomitant]
     Active Substance: ELDECALCITOL
     Indication: OSTEOPOROSIS
     Route: 048
     Dates: start: 201106
  2. PREDNISOLONE. [Concomitant]
     Active Substance: PREDNISOLONE
     Indication: OSTEOPOROSIS
     Route: 048
     Dates: start: 199904
  3. LIMETHASON [Concomitant]
     Dosage: DOSAGE IS UNCERTAIN.
     Route: 042
     Dates: start: 19980410
  4. RIMATIL [Concomitant]
     Active Substance: BUCILLAMINE
     Indication: OSTEOPOROSIS
     Route: 048
     Dates: start: 20070305
  5. OMEPRAZON [Concomitant]
     Active Substance: OMEPRAZOLE
     Indication: OSTEOPOROSIS
     Route: 048
     Dates: start: 20120125
  6. MYSLEE [Concomitant]
     Active Substance: ZOLPIDEM TARTRATE
     Indication: INSOMNIA
     Route: 048
     Dates: start: 20130305
  7. BONVIVA [Suspect]
     Active Substance: IBANDRONATE SODIUM
     Indication: OSTEOPOROSIS
     Route: 042
     Dates: start: 20150421, end: 20150421
  8. TRAMCET [Concomitant]
     Active Substance: ACETAMINOPHEN\TRAMADOL
     Indication: SPONDYLOLISTHESIS
     Route: 048
     Dates: start: 20140930
  9. LYRICA [Concomitant]
     Active Substance: PREGABALIN
     Indication: PROPHYLAXIS
     Dosage: DOSAGE IS UNCERTAIN.
     Route: 048
     Dates: start: 20141230, end: 20150421

REACTIONS (4)
  - Dyspnoea [Recovered/Resolved]
  - Nausea [Recovered/Resolved]
  - Feeling cold [Recovered/Resolved]
  - Tremor [Recovered/Resolved]

NARRATIVE: CASE EVENT DATE: 20150422
